FAERS Safety Report 17349081 (Version 2)
Quarter: 2020Q1

REPORT INFORMATION
  Report Type: Spontaneous
  Country: JP (occurrence: JP)
  Receive Date: 20200130
  Receipt Date: 20200205
  Transmission Date: 20200409
  Serious: No
  Sender: FDA-Public Use
  Company Number: JP-PFIZER INC-2020037609

PATIENT
  Age: 30 Year
  Sex: Female

DRUGS (2)
  1. IRINOTECAN HCL [Suspect]
     Active Substance: IRINOTECAN HYDROCHLORIDE
     Indication: CARCINOID TUMOUR
     Dosage: UNK
  2. NAB-PACLITAXEL [Suspect]
     Active Substance: PACLITAXEL
     Indication: CARCINOID TUMOUR
     Dosage: UNK

REACTIONS (2)
  - Product use in unapproved indication [Unknown]
  - Off label use [Unknown]
